FAERS Safety Report 19971912 (Version 2)
Quarter: 2021Q4

REPORT INFORMATION
  Report Type: Spontaneous
  Country: JP (occurrence: JP)
  Receive Date: 20211019
  Receipt Date: 20211028
  Transmission Date: 20220303
  Serious: Yes (Death)
  Sender: FDA-Public Use
  Company Number: JP-JNJFOC-20210938127

PATIENT
  Age: 5 Decade
  Sex: Male

DRUGS (6)
  1. EPOPROSTENOL [Suspect]
     Active Substance: EPOPROSTENOL
     Indication: Pulmonary hypertension
     Route: 041
     Dates: start: 20210826, end: 20210826
  2. EPOPROSTENOL [Suspect]
     Active Substance: EPOPROSTENOL
     Route: 041
     Dates: start: 20210827, end: 20210827
  3. EPOPROSTENOL [Suspect]
     Active Substance: EPOPROSTENOL
     Route: 041
     Dates: start: 20210828, end: 20210831
  4. ADEMPAS [Concomitant]
     Active Substance: RIOCIGUAT
     Indication: Pulmonary hypertension
     Route: 048
     Dates: start: 20210827, end: 20210830
  5. ADEMPAS [Concomitant]
     Active Substance: RIOCIGUAT
     Route: 048
     Dates: start: 20210831, end: 20210831
  6. ADEMPAS [Concomitant]
     Active Substance: RIOCIGUAT
     Route: 048
     Dates: start: 20210901, end: 20210904

REACTIONS (3)
  - Cardiac failure [Fatal]
  - Pulmonary hypertension [Fatal]
  - Urine output decreased [Fatal]

NARRATIVE: CASE EVENT DATE: 20210101
